FAERS Safety Report 13368199 (Version 3)
Quarter: 2017Q3

REPORT INFORMATION
  Report Type: Spontaneous
  Country: CN (occurrence: CN)
  Receive Date: 20170324
  Receipt Date: 20170811
  Transmission Date: 20171127
  Serious: Yes (Other)
  Sender: FDA-Public Use
  Company Number: CN-009507513-1703CHN008873

PATIENT
  Age: 20 Year
  Sex: Female
  Weight: 53 kg

DRUGS (2)
  1. ORGALUTRAN [Suspect]
     Active Substance: GANIRELIX ACETATE
     Dosage: 0.25 MG, UNK
     Route: 058
     Dates: start: 20170317, end: 20170317
  2. PUREGON [Suspect]
     Active Substance: FOLLITROPIN
     Dosage: 200 IU, QD
     Route: 058
     Dates: start: 20170313, end: 20170320

REACTIONS (5)
  - Erythema [Recovered/Resolved]
  - Anaphylactic shock [Recovering/Resolving]
  - Dizziness [Recovered/Resolved]
  - Injection site pruritus [Recovering/Resolving]
  - Palpitations [Recovered/Resolved]

NARRATIVE: CASE EVENT DATE: 20170317
